FAERS Safety Report 12147049 (Version 3)
Quarter: 2016Q1

REPORT INFORMATION
  Report Type: Report from Study
  Country: US (occurrence: US)
  Receive Date: 20160304
  Receipt Date: 20160318
  Transmission Date: 20160526
  Serious: Yes (Hospitalization, Other)
  Sender: FDA-Public Use
  Company Number: US-ACTELION-A-NJ2016-130659

PATIENT
  Age: 39 Year
  Sex: Female

DRUGS (5)
  1. TRACLEER [Suspect]
     Active Substance: BOSENTAN
     Indication: PULMONARY ARTERIAL HYPERTENSION
     Dosage: UNK
     Route: 048
  2. REMODULIN [Suspect]
     Active Substance: TREPROSTINIL
     Indication: PRODUCT USED FOR UNKNOWN INDICATION
     Route: 058
  3. REMODULIN [Suspect]
     Active Substance: TREPROSTINIL
     Dosage: UNK
     Route: 042
  4. SILDENAFIL. [Concomitant]
     Active Substance: SILDENAFIL
  5. COUMADIN [Concomitant]
     Active Substance: WARFARIN SODIUM

REACTIONS (19)
  - Tremor [Unknown]
  - Catheter site infection [Unknown]
  - Constipation [Unknown]
  - Feeling hot [Unknown]
  - Asthenia [Unknown]
  - Pain [Recovered/Resolved]
  - Bronchitis [Unknown]
  - Seizure [Unknown]
  - Pneumonia [Unknown]
  - Headache [Unknown]
  - Syncope [Unknown]
  - Nausea [Unknown]
  - Diarrhoea [Unknown]
  - Pain in jaw [Unknown]
  - Contusion [Unknown]
  - Fatigue [Unknown]
  - Fall [Unknown]
  - Joint swelling [Unknown]
  - Flushing [Unknown]

NARRATIVE: CASE EVENT DATE: 201512
